FAERS Safety Report 6283852-2 (Version None)
Quarter: 2009Q3

REPORT INFORMATION
  Report Type: 
  Country: None (occurrence: None)
  Receive Date: 20090723
  Receipt Date: 20090723
  Transmission Date: 20100115
  Serious: No
  Sender: FDA-Public Use
  Company Number: None

PATIENT
  Sex: Male
  Weight: 108.8633 kg

DRUGS (2)
  1. NIX [Suspect]
     Indication: LICE INFESTATION
     Dosage: WE USED NIX ONE TIME FOR A 10 MINUTE SHAMPOO
     Dates: start: 20090717, end: 20090721
  2. RID [Concomitant]

REACTIONS (3)
  - ACCIDENTAL EXPOSURE [None]
  - DIZZINESS [None]
  - HEADACHE [None]
